FAERS Safety Report 8335267-0 (Version None)
Quarter: 2012Q2

REPORT INFORMATION
  Report Type: 
  Country: None (occurrence: None)
  Receive Date: 20120503
  Receipt Date: 20120423
  Transmission Date: 20120825
  Serious: Yes (Hospitalization)
  Sender: FDA-Public Use
  Company Number: CH-ABBOTT-12P-151-0928291-00

PATIENT
  Age: 27 Year
  Sex: Female
  Weight: 67 kg

DRUGS (6)
  1. HUMIRA [Suspect]
     Route: 058
  2. SOLEVITA FORTE [Concomitant]
     Indication: NERVOUSNESS
     Dates: start: 20111001
  3. HUMIRA [Suspect]
     Route: 058
  4. HUMIRA [Suspect]
     Indication: CROHN'S DISEASE
     Route: 058
     Dates: start: 20120315
  5. PREDNISONE TAB [Suspect]
     Route: 048
  6. PREDNISONE TAB [Suspect]
     Indication: CROHN'S DISEASE
     Route: 048
     Dates: start: 20120315

REACTIONS (1)
  - PYREXIA [None]
